FAERS Safety Report 9030160 (Version 1)
Quarter: 2013Q1

REPORT INFORMATION
  Report Type: Other
  Country: DE (occurrence: DE)
  Receive Date: 20130125
  Receipt Date: 20130125
  Transmission Date: 20140127
  Serious: Yes (Hospitalization)
  Sender: FDA-Public Use
  Company Number: DE-BRISTOL-MYERS SQUIBB COMPANY-17287855

PATIENT
  Age: 65 Year
  Sex: Male

DRUGS (2)
  1. MITOMYCIN [Suspect]
     Indication: NASOPHARYNGEAL CANCER
  2. FLUOROURACIL [Suspect]
     Indication: NASOPHARYNGEAL CANCER

REACTIONS (3)
  - Adhesion [Unknown]
  - Dysphagia [Unknown]
  - Pneumonia aspiration [Recovered/Resolved]
